FAERS Safety Report 21673313 (Version 1)
Quarter: 2022Q4

REPORT INFORMATION
  Report Type: Spontaneous
  Country: US (occurrence: US)
  Receive Date: 20221202
  Receipt Date: 20221202
  Transmission Date: 20230113
  Serious: Yes (Other)
  Sender: FDA-Public Use
  Company Number: US-BAYER-2022A164157

PATIENT
  Sex: Female

DRUGS (1)
  1. BETASERON [Suspect]
     Active Substance: INTERFERON BETA-1B
     Dosage: FOR 5-6 YEARS

REACTIONS (5)
  - Myocardial infarction [None]
  - Throat clearing [None]
  - Frustration tolerance decreased [None]
  - Depressed mood [None]
  - Cardiac assistance device user [None]
